FAERS Safety Report 10504147 (Version 1)
Quarter: 2014Q4

REPORT INFORMATION
  Report Type: Spontaneous
  Country: US (occurrence: US)
  Receive Date: 20141008
  Receipt Date: 20141008
  Transmission Date: 20150528
  Serious: No
  Sender: FDA-Public Use
  Company Number: US-BEH-2014040495

PATIENT
  Sex: Male
  Weight: 95 kg

DRUGS (1)
  1. PRIVIGEN [Suspect]
     Active Substance: HUMAN IMMUNOGLOBULIN G
     Indication: HYPOGAMMAGLOBULINAEMIA
     Dosage: OVER 4 TO 6 HOURS; 1 TIME EVERY OTHER MONTH
     Route: 042

REACTIONS (2)
  - Upper respiratory tract infection [Unknown]
  - Influenza [Unknown]
